FAERS Safety Report 4468137-9 (Version None)
Quarter: 2004Q4

REPORT INFORMATION
  Report Type: 
  Country: None (occurrence: None)
  Receive Date: 20041004
  Receipt Date: 20041004
  Transmission Date: 20050328
  Serious: Yes (Life-Threatening, Hospitalization, Disabling)
  Sender: FDA-Public Use
  Company Number: None

PATIENT
  Age: 53 Year
  Sex: Female
  Weight: 65.318 kg

DRUGS (6)
  1. VIOXX [Suspect]
     Indication: FIBROMYALGIA
     Dosage: 2 X PER DAY
     Dates: start: 20021101, end: 20040407
  2. VIOXX [Suspect]
     Indication: PAIN
     Dosage: 2 X PER DAY
     Dates: start: 20021101, end: 20040407
  3. CELEBREX [Suspect]
     Indication: OSTEOARTHRITIS
     Dosage: 2 X PER DAY
     Dates: start: 20041101, end: 20040630
  4. CELEBREX [Suspect]
     Indication: PAIN
     Dosage: 2 X PER DAY
     Dates: start: 20041101, end: 20040630
  5. CELEBREX [Suspect]
     Indication: SWELLING
     Dosage: 2 X PER DAY
     Dates: start: 20041101, end: 20040630
  6. BEXTRA [Concomitant]

REACTIONS (1)
  - MYOCARDIAL INFARCTION [None]
